FAERS Safety Report 14680923 (Version 2)
Quarter: 2018Q2

REPORT INFORMATION
  Report Type: Spontaneous
  Country: JP (occurrence: JP)
  Receive Date: 20180326
  Receipt Date: 20180627
  Transmission Date: 20180711
  Serious: Yes (Hospitalization, Other)
  Sender: FDA-Public Use
  Company Number: JP-VIFOR (INTERNATIONAL) INC.-VIT-2018-02778

PATIENT
  Age: 84 Year
  Sex: Male

DRUGS (4)
  1. MIRCERA [Suspect]
     Active Substance: METHOXY POLYETHYLENE GLYCOL-EPOETIN BETA
     Indication: NEPHROGENIC ANAEMIA
     Route: 058
     Dates: start: 20160713, end: 20171025
  2. ADALAT CC [Concomitant]
     Active Substance: NIFEDIPINE
     Dates: start: 20160706
  3. ZYLORIC [Concomitant]
     Active Substance: ALLOPURINOL
     Dates: start: 20170115
  4. MICARDIS [Concomitant]
     Active Substance: TELMISARTAN
     Dates: start: 20160810

REACTIONS (2)
  - Chronic kidney disease [Not Recovered/Not Resolved]
  - Cardiac failure [Unknown]

NARRATIVE: CASE EVENT DATE: 2017
